FAERS Safety Report 4871630-8 (Version None)
Quarter: 2006Q1

REPORT INFORMATION
  Report Type: 
  Country: None (occurrence: None)
  Receive Date: 20060104
  Receipt Date: 20051221
  Transmission Date: 20060701
  Serious: Yes (Hospitalization)
  Sender: FDA-Public Use
  Company Number: US-AMGEN-US162625

PATIENT
  Sex: Female
  Weight: 62 kg

DRUGS (8)
  1. PROCRIT [Suspect]
     Indication: DIALYSIS
     Route: 042
     Dates: start: 20041201, end: 20051201
  2. NEXIUM [Concomitant]
  3. ATARAX [Concomitant]
  4. ZINC [Concomitant]
  5. PAXIL [Concomitant]
  6. FOLIC ACID [Concomitant]
  7. NEPHRO-CAPS [Concomitant]
  8. DECADRON [Concomitant]

REACTIONS (4)
  - APLASTIC ANAEMIA [None]
  - BONE MARROW FAILURE [None]
  - PANCYTOPENIA [None]
  - THERAPEUTIC RESPONSE DECREASED [None]
